FAERS Safety Report 14329131 (Version 1)
Quarter: 2017Q4

REPORT INFORMATION
  Report Type: Spontaneous
  Country: US (occurrence: US)
  Receive Date: 20171227
  Receipt Date: 20171227
  Transmission Date: 20180321
  Serious: Yes (Death, Hospitalization)
  Sender: FDA-Public Use
  Company Number: US-PFIZER INC-2017544550

PATIENT
  Age: 57 Year
  Sex: Female

DRUGS (11)
  1. POTASSIUM CHLORIDE. [Suspect]
     Active Substance: POTASSIUM CHLORIDE
     Dosage: UNK
     Route: 048
  2. FUROSEMIDE. [Suspect]
     Active Substance: FUROSEMIDE
     Dosage: UNK
     Route: 048
  3. RIVAROXABAN [Suspect]
     Active Substance: RIVAROXABAN
     Dosage: UNK
     Route: 048
  4. CLONAZEPAM. [Suspect]
     Active Substance: CLONAZEPAM
     Dosage: UNK
     Route: 048
  5. METFORMIN [Suspect]
     Active Substance: METFORMIN HYDROCHLORIDE
     Dosage: UNK
     Route: 048
  6. ESZOPICLONE. [Suspect]
     Active Substance: ESZOPICLONE
     Dosage: UNK
     Route: 048
  7. TRAMADOL. [Suspect]
     Active Substance: TRAMADOL
     Dosage: UNK
     Route: 048
  8. HYDROCHLOROTHIAZIDE. [Suspect]
     Active Substance: HYDROCHLOROTHIAZIDE
     Dosage: UNK
     Route: 048
  9. BACLOFEN. [Suspect]
     Active Substance: BACLOFEN
     Dosage: UNK
     Route: 048
  10. METHYLPHENIDATE HYDROCHLORIDE. [Suspect]
     Active Substance: METHYLPHENIDATE HYDROCHLORIDE
     Dosage: UNK
     Route: 048
  11. ALPRAZOLAM. [Suspect]
     Active Substance: ALPRAZOLAM
     Dosage: UNK
     Route: 048

REACTIONS (1)
  - Completed suicide [Fatal]

NARRATIVE: CASE EVENT DATE: 2016
